FAERS Safety Report 9562482 (Version 2)
Quarter: 2013Q4

REPORT INFORMATION
  Report Type: Report from Study
  Country: DK (occurrence: DK)
  Receive Date: 20130927
  Receipt Date: 20131010
  Transmission Date: 20140711
  Serious: Yes (Hospitalization)
  Sender: FDA-Public Use
  Company Number: DK-GLAXOSMITHKLINE-Z0021202A

PATIENT
  Age: 26 Year
  Sex: Female
  Weight: 57.6 kg

DRUGS (3)
  1. DABRAFENIB [Suspect]
     Indication: MALIGNANT MELANOMA
     Dosage: 150MG TWICE PER DAY
     Route: 048
     Dates: start: 20130906
  2. TRAMETINIB [Suspect]
     Indication: MALIGNANT MELANOMA
     Dosage: 2MG PER DAY
     Route: 048
     Dates: start: 20130906
  3. HYDROCORTISON [Concomitant]
     Indication: RASH
     Dosage: .1PCT AS REQUIRED
     Route: 061
     Dates: start: 20130917

REACTIONS (1)
  - Fatigue [Recovered/Resolved]
